FAERS Safety Report 5790246-2 (Version None)
Quarter: 2008Q2

REPORT INFORMATION
  Report Type: 
  Country: None (occurrence: None)
  Receive Date: 20080626
  Receipt Date: 20080425
  Transmission Date: 20081010
  Serious: No
  Sender: FDA-Public Use
  Company Number: A0706813A

PATIENT

DRUGS (2)
  1. ALLI [Suspect]
     Dates: start: 20080101
  2. MULTI-VITAMIN [Concomitant]

REACTIONS (9)
  - ANOREXIA [None]
  - DEPRESSED MOOD [None]
  - DIARRHOEA [None]
  - DRUG INEFFECTIVE [None]
  - EMOTIONAL DISORDER [None]
  - FATIGUE [None]
  - FOOD CRAVING [None]
  - NERVOUSNESS [None]
  - THYROID DISORDER [None]
